FAERS Safety Report 8456045-8 (Version None)
Quarter: 2012Q2

REPORT INFORMATION
  Report Type: 
  Country: None (occurrence: None)
  Receive Date: 20120621
  Receipt Date: 20120612
  Transmission Date: 20120825
  Serious: Yes (Other)
  Sender: FDA-Public Use
  Company Number: PHHY2012IT051105

PATIENT
  Sex: Female

DRUGS (1)
  1. VOLTAREN [Suspect]
     Indication: NECK PAIN
     Dosage: 1 DF, (75MG/3ML INJECTABLE SOLUTION)
     Route: 030
     Dates: start: 20120531, end: 20120531

REACTIONS (9)
  - PRURITUS [None]
  - BLOOD UREA INCREASED [None]
  - LYMPHOCYTE COUNT INCREASED [None]
  - ERYTHEMA [None]
  - BLOOD GLUCOSE INCREASED [None]
  - BLOOD CHOLINESTERASE INCREASED [None]
  - NEUTROPHIL COUNT INCREASED [None]
  - DERMATITIS BULLOUS [None]
  - URTICARIA [None]
